FAERS Safety Report 13967517 (Version 1)
Quarter: 2017Q3

REPORT INFORMATION
  Report Type: Spontaneous
  Country: CA (occurrence: CA)
  Receive Date: 20170914
  Receipt Date: 20170914
  Transmission Date: 20171128
  Serious: Yes (Hospitalization, Other)
  Sender: FDA-Public Use
  Company Number: CA-TEVA-805599ACC

PATIENT
  Age: 80 Year
  Sex: Male
  Weight: 90.8 kg

DRUGS (9)
  1. CO TOPIRAMATE [Suspect]
     Active Substance: TOPIRAMATE
     Dosage: 800 MILLIGRAM DAILY;
     Route: 048
  2. TAMSULOSIN CR [Concomitant]
     Active Substance: TAMSULOSIN
  3. NITROFURANTOIN. [Concomitant]
     Active Substance: NITROFURANTOIN
  4. PERINDOPRIL [Concomitant]
     Active Substance: PERINDOPRIL
  5. VITAMIN B12 [Concomitant]
     Active Substance: CYANOCOBALAMIN
  6. CO TOPIRAMATE [Suspect]
     Active Substance: TOPIRAMATE
     Indication: EPILEPSY
     Dosage: 200 MILLIGRAM DAILY;
     Route: 048
  7. CALCIUM [Concomitant]
     Active Substance: CALCIUM
  8. CARBAMAZEPINE CR [Concomitant]
  9. TEMAZEPAM. [Concomitant]
     Active Substance: TEMAZEPAM

REACTIONS (3)
  - Bilevel positive airway pressure [Unknown]
  - Metabolic acidosis [Unknown]
  - Urinary tract infection [Unknown]
